APPROVED DRUG PRODUCT: PROFERDEX
Active Ingredient: IRON DEXTRAN
Strength: EQ 50MG IRON/ML
Dosage Form/Route: INJECTABLE;INJECTION
Application: N017807 | Product #001
Applicant: NEW RIVER PHARMACEUTICALS INC
Approved: Approved Prior to Jan 1, 1982 | RLD: No | RS: No | Type: DISCN